FAERS Safety Report 5106564-7 (Version None)
Quarter: 2006Q3

REPORT INFORMATION
  Report Type: 
  Country: None (occurrence: None)
  Receive Date: 20060918
  Receipt Date: 20060908
  Transmission Date: 20061208
  Serious: Yes (Hospitalization)
  Sender: FDA-Public Use
  Company Number: FR-GLAXOSMITHKLINE-B0438330A

PATIENT
  Age: 25 Year
  Sex: Female

DRUGS (1)
  1. AUGMENTIN [Suspect]
     Route: 048
     Dates: start: 20051209, end: 20051209

REACTIONS (6)
  - DERMATITIS EXFOLIATIVE [None]
  - FACE OEDEMA [None]
  - OESOPHAGEAL PAIN [None]
  - PARAESTHESIA ORAL [None]
  - PRURITUS [None]
  - TACHYCARDIA [None]
